FAERS Safety Report 16743790 (Version 2)
Quarter: 2019Q3

REPORT INFORMATION
  Report Type: Spontaneous
  Country: JP (occurrence: JP)
  Receive Date: 20190827
  Receipt Date: 20190912
  Transmission Date: 20191005
  Serious: Yes (Other)
  Sender: FDA-Public Use
  Company Number: JP-TEVA-2019-JP-1098353

PATIENT
  Age: 77 Year
  Sex: Male
  Weight: 46 kg

DRUGS (12)
  1. DEXAMETHASONE. [Suspect]
     Active Substance: DEXAMETHASONE
     Indication: PLASMA CELL MYELOMA
     Dosage: PART OF THE THIRD LINE TREATMENT
     Route: 065
  2. BORTEZOMIB. [Suspect]
     Active Substance: BORTEZOMIB
     Dosage: ADMINISTERED BIWEEKLY AT THE SAME DOSAGE FROM THE 9TH COURSE (PART OF THE FIFTH-LINE TREATMENT)
     Route: 065
  3. POMALIDOMIDE [Suspect]
     Active Substance: POMALIDOMIDE
     Indication: PLASMA CELL MYELOMA
     Dosage: 4 MILLIGRAM DAILY; PART OF THE FOURTH-LINE TREATMENT
     Route: 065
  4. THALIDOMIDE [Suspect]
     Active Substance: THALIDOMIDE
     Indication: PLASMA CELL MYELOMA
     Dosage: 50 MILLIGRAM DAILY; PART OF THE FIFTH-LINE TREATMENT
     Route: 065
  5. DEXAMETHASONE. [Suspect]
     Active Substance: DEXAMETHASONE
     Dosage: PART OF THE FIFTH-LINE TREATMENT
     Route: 065
  6. BORTEZOMIB. [Suspect]
     Active Substance: BORTEZOMIB
     Indication: PLASMA CELL MYELOMA
     Dosage: PART OF THE SECOND-LINE TREATMENT (6 COURSES)
     Route: 065
  7. BORTEZOMIB. [Suspect]
     Active Substance: BORTEZOMIB
     Dosage: PART OF THE FIFTH-LINE TREATMENT; ADMINISTERED FOR 3 WEEKS WITH 1 WEEK BREAK
     Route: 065
  8. DEXAMETHASONE. [Suspect]
     Active Substance: DEXAMETHASONE
     Dosage: PART OF THE FOURTH-LINE TREATMENT
     Route: 065
  9. DEXAMETHASONE. [Suspect]
     Active Substance: DEXAMETHASONE
     Dosage: ADMINISTERED BIWEEKLY AT THE SAME DOSAGE FROM THE 9TH COURSE (PART OF THE FIFTH-LINE TREATMENT)
     Route: 065
  10. THALIDOMIDE [Suspect]
     Active Substance: THALIDOMIDE
     Dosage: DOSE REDUCED AT 9TH COURSE (FIFTH-LINE TREATMENT)
     Route: 065
  11. LENALIDOMIDE [Suspect]
     Active Substance: LENALIDOMIDE
     Indication: PLASMA CELL MYELOMA
     Dosage: 15 MILLIGRAM DAILY; PART OF THE THIRD LINE TREATMENT
     Route: 065
  12. POMALIDOMIDE [Suspect]
     Active Substance: POMALIDOMIDE
     Dosage: 3 MILLIGRAM DAILY; DOSE REDUCED 3 MG/DAY FROM 2ND COURSE
     Route: 065

REACTIONS (4)
  - Drug ineffective [Unknown]
  - Melaena [Unknown]
  - Anaemia [Unknown]
  - Neutropenia [Unknown]

NARRATIVE: CASE EVENT DATE: 201610
